FAERS Safety Report 20474625 (Version 2)
Quarter: 2022Q1

REPORT INFORMATION
  Report Type: Spontaneous
  Country: IT (occurrence: IT)
  Receive Date: 20220215
  Receipt Date: 20220329
  Transmission Date: 20220423
  Serious: Yes (Other)
  Sender: FDA-Public Use
  Company Number: IT-SA-SAC20220209001621

PATIENT
  Sex: Male

DRUGS (1)
  1. FABRAZYME [Suspect]
     Active Substance: AGALSIDASE BETA
     Indication: Fabry^s disease
     Dosage: UNK, QW
     Route: 065

REACTIONS (3)
  - Laryngeal oedema [Unknown]
  - Product use issue [Unknown]
  - Extra dose administered [Unknown]
